FAERS Safety Report 6574401-X (Version None)
Quarter: 2010Q1

REPORT INFORMATION
  Report Type: 
  Country: None (occurrence: None)
  Receive Date: 20100209
  Receipt Date: 20100202
  Transmission Date: 20100710
  Serious: Yes (Hospitalization)
  Sender: FDA-Public Use
  Company Number: US-BIOGENIDEC-2009BI017811

PATIENT
  Sex: Female

DRUGS (2)
  1. AVONEX [Suspect]
     Indication: MULTIPLE SCLEROSIS
     Route: 030
     Dates: start: 19970101, end: 20010101
  2. AVONEX [Suspect]
     Route: 030
     Dates: start: 20071009

REACTIONS (8)
  - AMNESIA [None]
  - FALL [None]
  - NARCOLEPSY [None]
  - PNEUMONIA [None]
  - SKELETAL INJURY [None]
  - SKIN ULCER [None]
  - TRAUMATIC LUNG INJURY [None]
  - WEIGHT DECREASED [None]
